FAERS Safety Report 5071840-3 (Version None)
Quarter: 2006Q3

REPORT INFORMATION
  Report Type: 
  Country: None (occurrence: None)
  Receive Date: 20060801
  Receipt Date: 20060725
  Transmission Date: 20061208
  Serious: Yes (Hospitalization)
  Sender: FDA-Public Use
  Company Number: 200610696BFR

PATIENT
  Age: 79 Year
  Sex: Female
  Weight: 65 kg

DRUGS (2)
  1. MOXIFLOXACIN HYDROCHLORIDE [Suspect]
     Indication: SUPERINFECTION LUNG
     Dosage: 400 MG QD ORAL
     Route: 048
     Dates: start: 20060602, end: 20060604
  2. MEDROL [Suspect]
     Indication: SUPERINFECTION LUNG
     Dosage: 16 MG TOTAL DAILY ORAL
     Route: 048
     Dates: end: 20060604

REACTIONS (4)
  - ASTHENIA [None]
  - HYPERTONIA [None]
  - NERVE ROOT COMPRESSION [None]
  - SCIATICA [None]
